FAERS Safety Report 6170540-6 (Version None)
Quarter: 2009Q2

REPORT INFORMATION
  Report Type: 
  Country: None (occurrence: None)
  Receive Date: 20090424
  Receipt Date: 20090113
  Transmission Date: 20091009
  Serious: No
  Sender: FDA-Public Use
  Company Number: ALL1-2009-00089

PATIENT

DRUGS (4)
  1. VYVANSE [Suspect]
     Dosage: 30 MG, 1X/DAY:QD, ORAL ; 60 MG, 1X/DAY:QD, ORAL ; 40 MG, 1X/DAY:QD, ORAL
     Route: 048
     Dates: end: 20090112
  2. VYVANSE [Suspect]
     Dosage: 30 MG, 1X/DAY:QD, ORAL ; 60 MG, 1X/DAY:QD, ORAL ; 40 MG, 1X/DAY:QD, ORAL
     Route: 048
     Dates: start: 20090113
  3. TENEX [Concomitant]
  4. VITERAL (TOCOPHERYL ACETATE) [Concomitant]

REACTIONS (1)
  - DYSKINESIA [None]
